FAERS Safety Report 5102740-8 (Version None)
Quarter: 2006Q3

REPORT INFORMATION
  Report Type: 
  Country: None (occurrence: None)
  Receive Date: 20060907
  Receipt Date: 20060821
  Transmission Date: 20061208
  Serious: Yes (Hospitalization)
  Sender: FDA-Public Use
  Company Number: DE200608000012

PATIENT
  Age: 14 Year
  Sex: Male

DRUGS (2)
  1. HUMATROPE [Suspect]
     Indication: GROWTH HORMONE DEFICIENCY
     Dosage: 1.4 MG, DAILY (1/D), SUBCUTANEOUS
     Route: 058
     Dates: start: 19970616, end: 20060730
  2. HUMATROPEN (UNKNOWN TYPE) (UNKNOWN HUMATROPEN TYPE) [Concomitant]

REACTIONS (2)
  - DIABETES MELLITUS [None]
  - METABOLIC DISORDER [None]
